FAERS Safety Report 4883678-8 (Version None)
Quarter: 2006Q1

REPORT INFORMATION
  Report Type: 
  Country: None (occurrence: None)
  Receive Date: 20060117
  Receipt Date: 20060117
  Transmission Date: 20060701
  Serious: Yes (Other)
  Sender: FDA-Public Use
  Company Number: None

PATIENT
  Age: 51 Year
  Sex: Female
  Weight: 68.0396 kg

DRUGS (2)
  1. BUPROPION HYDROCHLORIDE [Suspect]
     Indication: ANXIETY
     Dosage: 150    1X   PO
     Route: 048
     Dates: start: 20060111, end: 20060114
  2. BUPROPION HYDROCHLORIDE [Suspect]
     Indication: SMOKER
     Dosage: 150    1X   PO
     Route: 048
     Dates: start: 20060111, end: 20060114

REACTIONS (5)
  - ABASIA [None]
  - ARTHRALGIA [None]
  - BACK PAIN [None]
  - MYALGIA [None]
  - SOMNOLENCE [None]
